FAERS Safety Report 5018808-0 (Version None)
Quarter: 2006Q2

REPORT INFORMATION
  Report Type: 
  Country: None (occurrence: None)
  Receive Date: 20060531
  Receipt Date: 20060518
  Transmission Date: 20061013
  Serious: Yes (Hospitalization)
  Sender: FDA-Public Use
  Company Number: TRP_0767_2006

PATIENT
  Age: 54 Year
  Sex: Male

DRUGS (3)
  1. RIBASPHERE [Suspect]
     Indication: HEPATITIS C
     Dosage: 1800 MG BID PO
     Route: 048
     Dates: start: 20060313, end: 20060327
  2. PEG-INTRON [Suspect]
     Indication: HEPATITIS C
     Dosage: 150 MCG QWK SC
     Route: 058
  3. RIBASPHERE [Suspect]
     Indication: HEPATITIS C
     Dosage: 600 MG BID PO
     Route: 048

REACTIONS (4)
  - ANAEMIA [None]
  - CONFUSIONAL STATE [None]
  - HAEMOLYSIS [None]
  - INCORRECT DOSE ADMINISTERED [None]
